FAERS Safety Report 4594907-2 (Version None)
Quarter: 2005Q1

REPORT INFORMATION
  Report Type: 
  Country: None (occurrence: None)
  Receive Date: 20050223
  Receipt Date: 20050210
  Transmission Date: 20050727
  Serious: Yes (Hospitalization)
  Sender: FDA-Public Use
  Company Number: 2005028032

PATIENT
  Age: 76 Year
  Sex: Male

DRUGS (12)
  1. CABERGOLINE [Suspect]
     Indication: PARKINSON'S DISEASE
     Dosage: 3 GRAM (1 GRAM, UNKNOWN), ORAL
     Route: 048
     Dates: start: 20011023, end: 20041101
  2. BROMOCRIPTINE MESYLATE [Suspect]
     Indication: PARKINSON'S DISEASE
     Dosage: 10 MG (2.5 MG, UNKNOWN), ORAL
     Route: 048
     Dates: start: 19980101, end: 20011023
  3. NULYTELY (MACROGOL, POTASSIUM CHLORIDE, SODIUM BICARBONATE) [Concomitant]
  4. FUROSEMIDE (FURSOSEMIDE) [Concomitant]
  5. ASPIRIN [Concomitant]
  6. SPIRONOLACTONE [Concomitant]
  7. MADOPAR (BENSERAZIDE HYDROCHLORIDE, LEVODOPA) [Concomitant]
  8. SOTALOL HCL [Concomitant]
  9. LEKOVIT CA (CALCIUM CARBONATE, COLECALCIFEROL) [Concomitant]
  10. ENTACAPONE (ENTACAPONE) [Concomitant]
  11. TRIOBE (CYANCOBALAMIN, FOLIC ACID, PYRIDOXINE) [Concomitant]
  12. ZOPICLONE (ZOPICLONE) [Concomitant]

REACTIONS (5)
  - ASCITES [None]
  - CONGESTIVE CARDIOMYOPATHY [None]
  - FALL [None]
  - OEDEMA PERIPHERAL [None]
  - TRICUSPID VALVE INCOMPETENCE [None]
